FAERS Safety Report 8333667-6 (Version None)
Quarter: 2012Q2

REPORT INFORMATION
  Report Type: 
  Country: None (occurrence: None)
  Receive Date: 20120503
  Receipt Date: 20120501
  Transmission Date: 20120825
  Serious: Yes (Death, Other)
  Sender: FDA-Public Use
  Company Number: PHHY2012US037361

PATIENT
  Age: 39 Year
  Sex: Male

DRUGS (4)
  1. CISPLATIN [Concomitant]
     Indication: ADENOCARCINOMA
  2. PACLITAXEL [Concomitant]
  3. ENOXAPARIN [Suspect]
     Indication: DEEP VEIN THROMBOSIS
  4. GEMCITABINE [Concomitant]
     Indication: ADENOCARCINOMA

REACTIONS (5)
  - HYDRONEPHROSIS [None]
  - ADENOCARCINOMA [None]
  - OEDEMA PERIPHERAL [None]
  - BACK PAIN [None]
  - DEEP VEIN THROMBOSIS [None]
